FAERS Safety Report 19306344 (Version 1)
Quarter: 2021Q2

REPORT INFORMATION
  Report Type: Spontaneous
  Country: US (occurrence: US)
  Receive Date: 20210525
  Receipt Date: 20210525
  Transmission Date: 20210717
  Serious: Yes (Other)
  Sender: FDA-Public Use
  Company Number: US-TEVA-2021-US-1914654

PATIENT
  Age: 54 Year
  Sex: Female
  Weight: 69.8 kg

DRUGS (4)
  1. ORENITRAM [Suspect]
     Active Substance: TREPROSTINIL
     Indication: PULMONARY ARTERIAL HYPERTENSION
     Dosage: FORM OF ADMIN: EXTENDED RELEASE TABLET
     Route: 048
     Dates: start: 20210212
  2. ORENITRAM [Suspect]
     Active Substance: TREPROSTINIL
     Dosage: DOSE: 5 MG ORAL (PO) EVERY 8 HOURS, FORM OF ADMIN: EXTENDED RELEASE TABLET
     Route: 048
  3. OXYBUTYNIN. [Suspect]
     Active Substance: OXYBUTYNIN CHLORIDE
     Indication: PRODUCT USED FOR UNKNOWN INDICATION
     Route: 065
     Dates: start: 20210504
  4. OPSUMIT [Concomitant]
     Active Substance: MACITENTAN

REACTIONS (10)
  - Flushing [Recovering/Resolving]
  - Dry mouth [Recovering/Resolving]
  - Urinary tract infection [Recovering/Resolving]
  - Micturition urgency [Recovering/Resolving]
  - Urinary retention [Recovering/Resolving]
  - Cystitis [Recovering/Resolving]
  - Abdominal pain upper [Recovering/Resolving]
  - Dyspepsia [Recovering/Resolving]
  - Throat irritation [Recovering/Resolving]
  - Headache [Recovering/Resolving]

NARRATIVE: CASE EVENT DATE: 2021
